FAERS Safety Report 7749355-0 (Version None)
Quarter: 2011Q3

REPORT INFORMATION
  Report Type: 
  Country: None (occurrence: None)
  Receive Date: 20110908
  Receipt Date: 20110830
  Transmission Date: 20111222
  Serious: Yes (Hospitalization, Other)
  Sender: FDA-Public Use
  Company Number: 2011SP027373

PATIENT
  Age: 30 Year
  Sex: Female
  Weight: 92 kg

DRUGS (7)
  1. NUVARING [Suspect]
     Indication: CONTRACEPTION
     Dosage: QM;VAG ; QM;VAG
     Route: 067
     Dates: start: 20110516
  2. NUVARING [Suspect]
     Indication: CONTRACEPTION
     Dosage: QM;VAG ; QM;VAG
     Route: 067
     Dates: start: 20100101, end: 20110301
  3. RANITIDINE [Concomitant]
  4. MORPHINE [Concomitant]
  5. PARGEVERINE HYDROCHLORIDE [Concomitant]
  6. THIETHYLPERAZINE [Concomitant]
  7. BLADURIL [Concomitant]

REACTIONS (13)
  - CHOLELITHIASIS [None]
  - INCORRECT DRUG ADMINISTRATION DURATION [None]
  - WEIGHT DECREASED [None]
  - METRORRHAGIA [None]
  - INAPPROPRIATE SCHEDULE OF DRUG ADMINISTRATION [None]
  - CHOLECYSTITIS ACUTE [None]
  - BLOOD PRESSURE INCREASED [None]
  - PELVIC PAIN [None]
  - URINARY TRACT INFECTION [None]
  - CONFUSIONAL STATE [None]
  - NASOPHARYNGITIS [None]
  - WITHDRAWAL BLEED [None]
  - ABDOMINAL DISTENSION [None]
